FAERS Safety Report 8548501-9 (Version None)
Quarter: 2012Q3

REPORT INFORMATION
  Report Type: 
  Country: None (occurrence: None)
  Receive Date: 20120730
  Receipt Date: 20120723
  Transmission Date: 20120928
  Serious: Yes (Other)
  Sender: FDA-Public Use
  Company Number: US-009507513-1207USA009854

PATIENT

DRUGS (1)
  1. ZOCOR [Suspect]
     Dosage: 1 DF, UNK
     Route: 048

REACTIONS (6)
  - GAIT DISTURBANCE [None]
  - PAIN IN EXTREMITY [None]
  - HYPOAESTHESIA [None]
  - EXERCISE TOLERANCE DECREASED [None]
  - WEIGHT INCREASED [None]
  - ASTHENIA [None]
